FAERS Safety Report 12419584 (Version 8)
Quarter: 2022Q2

REPORT INFORMATION
  Report Type: Report from Study
  Country: JP (occurrence: JP)
  Receive Date: 20160531
  Receipt Date: 20220624
  Transmission Date: 20220720
  Serious: Yes (Other)
  Sender: FDA-Public Use
  Company Number: JP-VIIVHC-JP2016JPN073671AA

PATIENT

DRUGS (18)
  1. DOLUTEGRAVIR [Suspect]
     Active Substance: DOLUTEGRAVIR
     Indication: HIV infection
     Dosage: 50 MG, 1D
     Route: 048
     Dates: start: 20141104, end: 201910
  2. EPZICOM [Suspect]
     Active Substance: ABACAVIR SULFATE\LAMIVUDINE
     Indication: HIV infection
     Dosage: 1 DF, 1D
     Route: 048
     Dates: start: 20141104, end: 201910
  3. SODIUM FERROUS CITRATE [Suspect]
     Active Substance: SODIUM FERROUS CITRATE
     Indication: Iron deficiency anaemia
     Dosage: 50 MG, QD
     Dates: start: 20150803
  4. ROZEREM [Suspect]
     Active Substance: RAMELTEON
     Indication: Insomnia
     Dosage: 1 DF, QD
     Dates: start: 20160726
  5. SAMTIREL ORAL SUSPENSION [Concomitant]
     Indication: Pneumocystis jirovecii pneumonia
     Dosage: 750 MG, BID
     Route: 048
     Dates: start: 20141013, end: 20141025
  6. VENETLIN INHALATION [Concomitant]
     Indication: Antifungal prophylaxis
     Dosage: 0.3 ML, UNK
     Route: 055
     Dates: start: 20141027, end: 20160613
  7. AZITHROMYCIN DIHYDRATE [Concomitant]
     Active Substance: AZITHROMYCIN DIHYDRATE
     Indication: Opportunistic infection prophylaxis
     Dosage: 1200 MG, WE
     Dates: start: 20141027, end: 20150330
  8. VALACYCLOVIR HYDROCHLORIDE [Concomitant]
     Active Substance: VALACYCLOVIR HYDROCHLORIDE
     Indication: Genital herpes
     Dosage: 1000 MG, BID
     Dates: start: 20141011, end: 20141020
  9. VALACYCLOVIR HYDROCHLORIDE [Concomitant]
     Active Substance: VALACYCLOVIR HYDROCHLORIDE
     Indication: Herpes ophthalmic
     Dosage: 1000 MG, BID
     Dates: start: 20141119, end: 20141123
  10. VALACYCLOVIR HYDROCHLORIDE [Concomitant]
     Active Substance: VALACYCLOVIR HYDROCHLORIDE
     Indication: Immune reconstitution inflammatory syndrome
     Dosage: 1000 MG, BID
     Dates: start: 20141202, end: 20141206
  11. VALACYCLOVIR HYDROCHLORIDE [Concomitant]
     Active Substance: VALACYCLOVIR HYDROCHLORIDE
     Indication: Genital herpes
     Dosage: 500 MG, BID
     Dates: start: 20141216, end: 20141228
  12. VALACYCLOVIR HYDROCHLORIDE [Concomitant]
     Active Substance: VALACYCLOVIR HYDROCHLORIDE
     Dosage: 500 MG, QD
     Dates: start: 20150121, end: 20160824
  13. VALACYCLOVIR HYDROCHLORIDE [Concomitant]
     Active Substance: VALACYCLOVIR HYDROCHLORIDE
     Dosage: UNK
     Dates: start: 20171110
  14. PENTAMIDINE [Concomitant]
     Active Substance: PENTAMIDINE
     Indication: Antifungal prophylaxis
     Dosage: 0.33 V, QD
     Dates: start: 20141027, end: 20160613
  15. ZOLPIDEM TARTRATE [Concomitant]
     Active Substance: ZOLPIDEM TARTRATE
     Indication: Insomnia
     Dosage: 5 MG, PRN
     Dates: start: 20141008, end: 20141106
  16. BROTIZOLAM [Concomitant]
     Active Substance: BROTIZOLAM
     Indication: Insomnia
     Dosage: 0.25 MG, PRN
     Dates: start: 20141107
  17. ETIZOLAM [Concomitant]
     Active Substance: ETIZOLAM
     Dosage: UNK
     Dates: start: 20180807
  18. BIKTARVY [Concomitant]
     Active Substance: BICTEGRAVIR SODIUM\EMTRICITABINE\TENOFOVIR ALAFENAMIDE FUMARATE
     Indication: HIV infection
     Dosage: 1 DF, 1D
     Dates: start: 201910

REACTIONS (4)
  - Immune reconstitution inflammatory syndrome [Recovered/Resolved]
  - Herpes ophthalmic [Recovered/Resolved]
  - Mumps [Recovered/Resolved]
  - Nausea [Recovered/Resolved]

NARRATIVE: CASE EVENT DATE: 20141125
